FAERS Safety Report 7352386-6 (Version None)
Quarter: 2011Q1

REPORT INFORMATION
  Report Type: 
  Country: None (occurrence: None)
  Receive Date: 20110309
  Receipt Date: 20110309
  Transmission Date: 20110831
  Serious: No
  Sender: FDA-Public Use
  Company Number: None

PATIENT
  Age: 52 Year
  Sex: Male
  Weight: 96 kg

DRUGS (2)
  1. TRUVADA [Suspect]
     Indication: HIV INFECTION
     Dosage: 1 TAB DAILY INJ
     Dates: start: 20110106, end: 20110205
  2. ISENTRESS [Concomitant]

REACTIONS (2)
  - DRUG DISPENSING ERROR [None]
  - PRODUCT COLOUR ISSUE [None]
